FAERS Safety Report 8339869 (Version 3)
Quarter: 2014Q2

REPORT INFORMATION
  Report Type: Spontaneous
  Country: US (occurrence: None)
  Receive Date: 20111201
  Receipt Date: 20140604
  Transmission Date: 20141212
  Serious: Yes (Hospitalization)
  Sender: FDA-Public Use
  Company Number: 20110926CINRY2310

PATIENT
  Age: 54 Year
  Sex: Female

DRUGS (15)
  1. CINRYZE [Suspect]
     Indication: PROPHYLAXIS
     Dosage: INTRAVENOUS (1000 IU, 1 IN 3 D), INTRAVENOUS (1500 IU, 2 IN 1 WK), INTRAVENOUS
     Route: 042
     Dates: start: 201011, end: 201012
  2. CINRYZE [Suspect]
     Indication: HEREDITARY ANGIOEDEMA
     Dosage: INTRAVENOUS (1000 IU, 1 IN 3 D), INTRAVENOUS (1500 IU, 2 IN 1 WK), INTRAVENOUS
     Route: 042
     Dates: start: 201011, end: 201012
  3. OXYGEN (OXYGEN) [Concomitant]
  4. NASAL SPRAY [Concomitant]
  5. BENADRYL [Concomitant]
  6. EPIPEN [Concomitant]
  7. XOPENEX [Concomitant]
  8. ADVAIR DISKUS [Concomitant]
  9. HYDROCODONE (HYDROCODONE) [Concomitant]
  10. DIAZEPAM (DIAZEPAM) [Concomitant]
  11. PLAVIX [Concomitant]
  12. METOPROLOL TARTRATE [Concomitant]
  13. DILTIAZEM [Concomitant]
  14. DANAZOL [Concomitant]
  15. MELATONIN (MELATONIN) [Concomitant]

REACTIONS (3)
  - Hereditary angioedema [None]
  - Hernia [None]
  - Therapy change [None]
